FAERS Safety Report 6703483-7 (Version None)
Quarter: 2010Q2

REPORT INFORMATION
  Report Type: 
  Country: None (occurrence: None)
  Receive Date: 20100430
  Receipt Date: 20100421
  Transmission Date: 20101027
  Serious: Yes (Hospitalization)
  Sender: FDA-Public Use
  Company Number: JP-ABBOTT-10P-087-0636182-00

PATIENT
  Sex: Female
  Weight: 58 kg

DRUGS (6)
  1. KLARICID TABLETS [Suspect]
     Indication: RESPIRATORY TRACT INFLAMMATION
     Dosage: 200MG TABLET
     Route: 048
     Dates: start: 20071024, end: 20071028
  2. SALICYLAMIDE/ACETAMINOPHEN/ANHYDROUS CAFFEINE/PROMETHAZINE [Suspect]
     Indication: UPPER RESPIRATORY TRACT INFLAMMATION
     Route: 048
     Dates: start: 20071013, end: 20071028
  3. COLDRIN [Suspect]
     Indication: RESPIRATORY TRACT INFLAMMATION
     Route: 048
     Dates: start: 20071013, end: 20071023
  4. MUCODYNE [Suspect]
     Indication: RESPIRATORY TRACT INFLAMMATION
     Route: 048
     Dates: start: 20071024, end: 20071028
  5. CRAVIT [Suspect]
     Indication: RESPIRATORY TRACT INFLAMMATION
     Dosage: 100 MG TABLET
     Dates: start: 20071024, end: 20071028
  6. HUSCODE TABLETS [Suspect]
     Indication: RESPIRATORY TRACT INFLAMMATION
     Dosage: FORM STRENGTH:  200 MILIGRAM
     Route: 048
     Dates: start: 20071024, end: 20071028

REACTIONS (9)
  - COUGH [None]
  - DEPRESSED LEVEL OF CONSCIOUSNESS [None]
  - OCULOMUCOCUTANEOUS SYNDROME [None]
  - OROPHARYNGEAL PAIN [None]
  - PYREXIA [None]
  - RASH [None]
  - RHABDOMYOLYSIS [None]
  - SPUTUM DISCOLOURED [None]
  - STEVENS-JOHNSON SYNDROME [None]
